FAERS Safety Report 5147298-2 (Version None)
Quarter: 2006Q4

REPORT INFORMATION
  Report Type: 
  Country: None (occurrence: None)
  Receive Date: 20061103
  Receipt Date: 20061018
  Transmission Date: 20070319
  Serious: Yes (Hospitalization)
  Sender: FDA-Public Use
  Company Number: 8019627

PATIENT
  Age: 44 Year
  Sex: Female

DRUGS (2)
  1. TUSSIONEX [Suspect]
     Indication: BRONCHITIS
  2. LEVAQUIN [Suspect]
     Indication: BRONCHITIS

REACTIONS (3)
  - CONVERSION DISORDER [None]
  - PARALYSIS [None]
  - VISION BLURRED [None]
